FAERS Safety Report 24843885 (Version 1)
Quarter: 2025Q1

REPORT INFORMATION
  Report Type: Spontaneous
  Country: VN (occurrence: VN)
  Receive Date: 20250115
  Receipt Date: 20250115
  Transmission Date: 20250408
  Serious: Yes (Other)
  Sender: ROCHE
  Company Number: VN-ROCHE-10000174403

PATIENT

DRUGS (2)
  1. ATEZOLIZUMAB [Suspect]
     Active Substance: ATEZOLIZUMAB
     Indication: Hepatocellular carcinoma
     Dosage: PREPARED INTRAVENOUS INFUSION, EVERY 3 WEEKS
     Route: 042
  2. BEVACIZUMAB [Suspect]
     Active Substance: BEVACIZUMAB
     Indication: Hepatocellular carcinoma
     Dosage: PREPARED INTRAVENOUS INFUSION, EVERY 3 WEEKS
     Route: 042

REACTIONS (8)
  - Off label use [Unknown]
  - Disease progression [Unknown]
  - Therapy partial responder [Unknown]
  - Fatigue [Unknown]
  - Haemoptysis [Unknown]
  - Hypertension [Unknown]
  - Hepatic enzyme increased [Unknown]
  - Thrombocytopenia [Unknown]
